FAERS Safety Report 12407165 (Version 5)
Quarter: 2019Q2

REPORT INFORMATION
  Report Type: Spontaneous
  Country: US (occurrence: US)
  Receive Date: 20160526
  Receipt Date: 20190607
  Transmission Date: 20190711
  Serious: No
  Sender: FDA-Public Use
  Company Number: US-PFIZER INC-2016243551

PATIENT
  Age: 74 Year
  Sex: Female
  Weight: 59 kg

DRUGS (6)
  1. SKELAXIN [Suspect]
     Active Substance: METAXALONE
     Indication: PAIN
     Dosage: 800 MG, 3X/DAY
     Route: 048
     Dates: start: 20161206
  2. SKELAXIN [Suspect]
     Active Substance: METAXALONE
     Indication: UTERINE LEIOMYOMA
  3. SKELAXIN [Suspect]
     Active Substance: METAXALONE
     Indication: ARTHRITIS
  4. SKELAXIN [Suspect]
     Active Substance: METAXALONE
     Indication: OSTEOPOROSIS
  5. SKELAXIN [Suspect]
     Active Substance: METAXALONE
     Indication: OSTEOARTHRITIS
  6. SKELAXIN [Suspect]
     Active Substance: METAXALONE
     Indication: FIBROMYALGIA

REACTIONS (2)
  - Therapeutic product effect incomplete [Recovering/Resolving]
  - Heart valve incompetence [Unknown]
